FAERS Safety Report 5982580-8 (Version None)
Quarter: 2008Q4

REPORT INFORMATION
  Report Type: 
  Country: None (occurrence: None)
  Receive Date: 20081208
  Receipt Date: 20081127
  Transmission Date: 20090506
  Serious: Yes (Other)
  Sender: FDA-Public Use
  Company Number: PHHY2008NZ29809

PATIENT
  Sex: Female

DRUGS (2)
  1. CLOZARIL [Suspect]
     Indication: SCHIZOPHRENIA
     Dosage: 12.5MG NOCTE
     Dates: start: 20081117
  2. CLOZARIL [Suspect]
     Dosage: 25 MG NOCTE
     Dates: start: 20081119, end: 20081124

REACTIONS (5)
  - BLOOD PRESSURE DECREASED [None]
  - BLOOD SODIUM DECREASED [None]
  - HEART RATE DECREASED [None]
  - TROPONIN T INCREASED [None]
  - VENTRICULAR EXTRASYSTOLES [None]
